FAERS Safety Report 10632553 (Version 1)
Quarter: 2014Q4

REPORT INFORMATION
  Report Type: Spontaneous
  Country: US (occurrence: US)
  Receive Date: 20141205
  Receipt Date: 20141205
  Transmission Date: 20150529
  Serious: No
  Sender: FDA-Public Use
  Company Number: US-BRISTOL-MYERS SQUIBB COMPANY-21476106

PATIENT
  Sex: Female

DRUGS (1)
  1. ELIQUIS [Suspect]
     Active Substance: APIXABAN
     Dosage: STRENGTH: 5MG TABS?1DF: HALF TABS
     Dates: start: 201408

REACTIONS (2)
  - Wrong technique in drug usage process [Unknown]
  - Pain [Not Recovered/Not Resolved]
